FAERS Safety Report 24808632 (Version 1)
Quarter: 2025Q1

REPORT INFORMATION
  Report Type: Other
  Country: US (occurrence: US)
  Receive Date: 20250106
  Receipt Date: 20250106
  Transmission Date: 20250409
  Serious: Yes (Hospitalization, Other)
  Sender: ANI
  Company Number: US-ANIPHARMA-015289

PATIENT
  Age: 39 Year
  Sex: Male

DRUGS (6)
  1. LEUCOVORIN CALCIUM [Suspect]
     Active Substance: LEUCOVORIN CALCIUM
     Indication: Colon cancer metastatic
  2. NIVOLUMAB [Concomitant]
     Active Substance: NIVOLUMAB
     Indication: Colon cancer metastatic
  3. FLUOROURACIL [Concomitant]
     Active Substance: FLUOROURACIL
     Indication: Colon cancer metastatic
  4. OXALIPLATIN [Concomitant]
     Active Substance: OXALIPLATIN
     Indication: Colon cancer metastatic
  5. ETANERCEPT [Concomitant]
     Active Substance: ETANERCEPT
     Indication: SJS-TEN overlap
  6. IMMUNE GLOBULIN [Concomitant]
     Indication: SJS-TEN overlap

REACTIONS (2)
  - Oesophageal candidiasis [Unknown]
  - Herpes simplex oesophagitis [Unknown]
